FAERS Safety Report 10366005 (Version 1)
Quarter: 2014Q3

REPORT INFORMATION
  Report Type: Spontaneous
  Country: US (occurrence: US)
  Receive Date: 20140806
  Receipt Date: 20140806
  Transmission Date: 20150326
  Serious: Yes (Hospitalization)
  Sender: FDA-Public Use
  Company Number: US-GLAXOSMITHKLINE-A1083222A

PATIENT
  Age: 60 Year
  Sex: Female

DRUGS (4)
  1. BLOOD PRESSURE MEDICATION [Concomitant]
     Active Substance: UNSPECIFIED INGREDIENT
  2. TOPIRAMATE. [Concomitant]
     Active Substance: TOPIRAMATE
  3. ADVAIR HFA [Suspect]
     Active Substance: FLUTICASONE PROPIONATE\SALMETEROL XINAFOATE
     Indication: BRONCHITIS
     Dosage: 1PUFF TWICE PER DAY
     Route: 055
     Dates: start: 200807
  4. QUINIDINE [Concomitant]
     Active Substance: QUINIDINE

REACTIONS (5)
  - Mastectomy [Unknown]
  - Drug ineffective [Unknown]
  - Breast cancer [Unknown]
  - Breast cancer recurrent [Unknown]
  - Breast neoplasm [Unknown]

NARRATIVE: CASE EVENT DATE: 2011
